FAERS Safety Report 5834180-8 (Version None)
Quarter: 2008Q3

REPORT INFORMATION
  Report Type: 
  Country: None (occurrence: None)
  Receive Date: 20080731
  Receipt Date: 20080718
  Transmission Date: 20090109
  Serious: Yes (Other)
  Sender: FDA-Public Use
  Company Number: 2008001720

PATIENT
  Age: 50 Year
  Sex: Female

DRUGS (1)
  1. TARCEVA [Suspect]
     Indication: NON-SMALL CELL LUNG CANCER
     Dosage: 150 MG,QD, ORAL
     Route: 048
     Dates: start: 20080601

REACTIONS (4)
  - NO THERAPEUTIC RESPONSE [None]
  - OPTIC NERVE INJURY [None]
  - OPTIC NEURITIS [None]
  - VISUAL ACUITY REDUCED [None]
